FAERS Safety Report 6164871-3 (Version None)
Quarter: 2009Q2

REPORT INFORMATION
  Report Type: 
  Country: None (occurrence: None)
  Receive Date: 20090423
  Receipt Date: 20090420
  Transmission Date: 20091009
  Serious: Yes (Hospitalization)
  Sender: FDA-Public Use
  Company Number: DE-WYE-G03332409

PATIENT
  Sex: Male
  Weight: 90 kg

DRUGS (2)
  1. TORISEL [Suspect]
     Indication: METASTATIC RENAL CELL CARCINOMA
     Route: 042
     Dates: start: 20090101
  2. DIPHENHYDRAMINE HCL [Concomitant]
     Indication: PREMEDICATION
     Dosage: 25-50MG 1 TIME PER WEEK
     Route: 042
     Dates: start: 20090101

REACTIONS (8)
  - BLOOD LACTATE DEHYDROGENASE INCREASED [None]
  - DYSPNOEA [None]
  - GAMMA-GLUTAMYLTRANSFERASE INCREASED [None]
  - HAEMATOCRIT DECREASED [None]
  - HAEMOGLOBIN DECREASED [None]
  - MALIGNANT PLEURAL EFFUSION [None]
  - PANIC ATTACK [None]
  - PLEURAL HAEMORRHAGE [None]
